FAERS Safety Report 7584170-2 (Version None)
Quarter: 2011Q2

REPORT INFORMATION
  Report Type: 
  Country: None (occurrence: None)
  Receive Date: 20110623
  Receipt Date: 20110531
  Transmission Date: 20111010
  Serious: Yes (Disabling, Other)
  Sender: FDA-Public Use
  Company Number: ALA_01393_2010

PATIENT
  Sex: Female

DRUGS (31)
  1. VITAMIN D [Concomitant]
  2. LIPITOR [Concomitant]
  3. ISOSORBIDE MONONITRATE [Concomitant]
  4. ATIVAN [Concomitant]
  5. OSCAL /00751519/ [Concomitant]
  6. HYZAAR [Concomitant]
  7. XANAX [Concomitant]
  8. OXYCONTIN [Concomitant]
  9. PERCOCET [Concomitant]
  10. IMDUR [Concomitant]
  11. DIABETA [Concomitant]
  12. ESTRACE [Concomitant]
  13. COZAAR [Concomitant]
  14. SYNTHROID [Concomitant]
  15. LORTAB [Concomitant]
  16. NITROSTAT [Concomitant]
  17. ZANAFLEX [Concomitant]
  18. PREVACID [Concomitant]
  19. METOPROLOL TARTRATE [Concomitant]
  20. ZOLOFT [Concomitant]
  21. LEXAPRO [Concomitant]
  22. NORVASC [Concomitant]
  23. ASPIRIN [Concomitant]
  24. ZOCOR [Concomitant]
  25. TRICOR [Concomitant]
  26. RANITIDINE [Concomitant]
  27. REGLAN [Suspect]
     Indication: IMPAIRED GASTRIC EMPTYING
     Dosage: (10 MG QID ORAL)
     Route: 048
     Dates: end: 20071001
  28. REGLAN [Suspect]
     Indication: GASTROOESOPHAGEAL REFLUX DISEASE
     Dosage: (10 MG QID ORAL)
     Route: 048
     Dates: end: 20071001
  29. GABAPENTIN [Concomitant]
  30. ZANTAC [Concomitant]
  31. NEXIUM [Concomitant]

REACTIONS (26)
  - DIZZINESS [None]
  - BALANCE DISORDER [None]
  - GINGIVITIS [None]
  - NERVOUS SYSTEM DISORDER [None]
  - MEMORY IMPAIRMENT [None]
  - CLUMSINESS [None]
  - CONFUSIONAL STATE [None]
  - FALL [None]
  - HEADACHE [None]
  - DISABILITY [None]
  - DYSPHAGIA [None]
  - PROTRUSION TONGUE [None]
  - ATAXIA [None]
  - EXTRAPYRAMIDAL DISORDER [None]
  - TARDIVE DYSKINESIA [None]
  - ACTIVITIES OF DAILY LIVING IMPAIRED [None]
  - SOMNOLENCE [None]
  - APATHY [None]
  - RESTLESSNESS [None]
  - PAIN [None]
  - ANXIETY [None]
  - MULTIPLE INJURIES [None]
  - DRY MOUTH [None]
  - COUGH [None]
  - DYSKINESIA [None]
  - CHOREA [None]
